FAERS Safety Report 22390099 (Version 4)
Quarter: 2024Q1

REPORT INFORMATION
  Report Type: Report from Study
  Country: US (occurrence: US)
  Receive Date: 20230531
  Receipt Date: 20240319
  Transmission Date: 20240409
  Serious: Yes (Other)
  Sender: FDA-Public Use
  Company Number: US-TAKEDA-2023TUS053407

PATIENT
  Age: 59 Year
  Sex: Male

DRUGS (2)
  1. VEDOLIZUMAB [Suspect]
     Active Substance: VEDOLIZUMAB
     Indication: Colitis ulcerative
     Dosage: 300 MILLIGRAM
     Route: 042
     Dates: start: 20230301
  2. VEDOLIZUMAB [Suspect]
     Active Substance: VEDOLIZUMAB
     Indication: Crohn^s disease
     Dosage: 300 MILLIGRAM, Q4WEEKS
     Route: 042

REACTIONS (5)
  - Colitis ulcerative [Not Recovered/Not Resolved]
  - Pneumonia [Not Recovered/Not Resolved]
  - Malaise [Recovered/Resolved]
  - Off label use [Unknown]
  - Sinusitis [Not Recovered/Not Resolved]

NARRATIVE: CASE EVENT DATE: 20230420
